FAERS Safety Report 5158077-4 (Version None)
Quarter: 2006Q4

REPORT INFORMATION
  Report Type: 
  Country: None (occurrence: None)
  Receive Date: 20061116
  Receipt Date: 20061103
  Transmission Date: 20070319
  Serious: No
  Sender: FDA-Public Use
  Company Number: E3810-00014-SPO-CA

PATIENT
  Age: 33 Year
  Sex: Female
  Weight: 96 kg

DRUGS (6)
  1. RABEPRAZOLE SODIUM [Suspect]
     Dosage: 10 MG, 1 IN 1 D, ORAL
     Route: 048
  2. FUROSEMIDE [Concomitant]
  3. METOPROLOL TARTRATE [Concomitant]
  4. FOLIC ACID [Concomitant]
  5. REPLIVITE [Concomitant]
  6. TRIPTOSIL [Concomitant]

REACTIONS (4)
  - AGGRESSION [None]
  - AGITATION [None]
  - DIARRHOEA [None]
  - MOOD SWINGS [None]
